FAERS Safety Report 13439793 (Version 3)
Quarter: 2019Q2

REPORT INFORMATION
  Report Type: Report from Study
  Country: US (occurrence: US)
  Receive Date: 20170413
  Receipt Date: 20190402
  Transmission Date: 20190711
  Serious: No
  Sender: FDA-Public Use
  Company Number: PHEH2017US010836

PATIENT
  Age: 33 Year
  Sex: Female

DRUGS (2)
  1. AFINITOR [Suspect]
     Active Substance: EVEROLIMUS
     Dosage: 7.5 MG, QD
     Route: 048
  2. AFINITOR [Suspect]
     Active Substance: EVEROLIMUS
     Indication: ANGIOMYOLIPOMA
     Dosage: 5 MG, QD
     Route: 048
     Dates: start: 20160223

REACTIONS (9)
  - Diarrhoea [Unknown]
  - Decreased appetite [Unknown]
  - Tooth disorder [Unknown]
  - Epistaxis [Unknown]
  - Constipation [Unknown]
  - Fatigue [Unknown]
  - Nasopharyngitis [Unknown]
  - Asthenia [Unknown]
  - Blood triglycerides increased [Unknown]

NARRATIVE: CASE EVENT DATE: 20170320
